FAERS Safety Report 6701772-3 (Version None)
Quarter: 2010Q2

REPORT INFORMATION
  Report Type: 
  Country: None (occurrence: None)
  Receive Date: 20100429
  Receipt Date: 20100419
  Transmission Date: 20101027
  Serious: Yes (Hospitalization)
  Sender: FDA-Public Use
  Company Number: DE-MPIJNJ-2010-01787

PATIENT

DRUGS (4)
  1. VELCADE [Suspect]
     Indication: MULTIPLE MYELOMA
     Dosage: 2.60 MG, CYCLIC
     Route: 042
     Dates: start: 20100223, end: 20100316
  2. MELPHALAN HYDROCHLORIDE [Suspect]
     Indication: MULTIPLE MYELOMA
     Dosage: 30 MG, UNK
     Route: 042
     Dates: start: 20100119, end: 20100119
  3. MELPHALAN HYDROCHLORIDE [Suspect]
     Dosage: 18 MG, UNK
     Route: 048
     Dates: start: 20100225, end: 20100226
  4. PREDNISONE [Suspect]
     Indication: MULTIPLE MYELOMA
     Dosage: 100 MG, UNK
     Route: 048
     Dates: start: 20100223, end: 20100226

REACTIONS (2)
  - CARDIAC FAILURE [None]
  - HEPATIC CIRRHOSIS [None]
